FAERS Safety Report 7486841-5 (Version None)
Quarter: 2011Q2

REPORT INFORMATION
  Report Type: 
  Country: None (occurrence: None)
  Receive Date: 20110517
  Receipt Date: 20100601
  Transmission Date: 20111010
  Serious: No
  Sender: FDA-Public Use
  Company Number: US-ALLERGAN-1007207US

PATIENT
  Sex: Female

DRUGS (3)
  1. THYROID MEDICATION (UNSPECIFIED) [Concomitant]
  2. ZYMAR [Suspect]
     Indication: POSTOPERATIVE CARE
  3. PRED FORTE [Suspect]
     Indication: POSTOPERATIVE CARE

REACTIONS (2)
  - LETHARGY [None]
  - ASTHENIA [None]
